FAERS Safety Report 5823216-6 (Version None)
Quarter: 2008Q3

REPORT INFORMATION
  Report Type: 
  Country: None (occurrence: None)
  Receive Date: 20080724
  Receipt Date: 20080724
  Transmission Date: 20090109
  Serious: Yes (Other)
  Sender: FDA-Public Use
  Company Number: None

PATIENT
  Sex: Female
  Weight: 82 kg

DRUGS (1)
  1. ZELMAC  (TEGASEROD) [Suspect]
     Indication: IRRITABLE BOWEL SYNDROME
     Dosage: 6 MG CADA 12 HORAS BUCCAL
     Route: 002
     Dates: start: 20080702, end: 20080718

REACTIONS (1)
  - TOOTHACHE [None]
